FAERS Safety Report 6153744-8 (Version None)
Quarter: 2009Q2

REPORT INFORMATION
  Report Type: 
  Country: None (occurrence: None)
  Receive Date: 20090410
  Receipt Date: 20090331
  Transmission Date: 20091009
  Serious: Yes (Hospitalization)
  Sender: FDA-Public Use
  Company Number: 2009US000991

PATIENT
  Age: 9 Year
  Sex: Female

DRUGS (1)
  1. TACROLIMUS [Suspect]
     Indication: DERMATITIS ATOPIC
     Dosage: 0.3%, TOPICAL
     Route: 061
     Dates: start: 20040318

REACTIONS (1)
  - PANCREATITIS [None]
